FAERS Safety Report 8790157 (Version 2)
Quarter: 2012Q4

REPORT INFORMATION
  Report Type: Report from Study
  Country: JP (occurrence: JP)
  Receive Date: 20120914
  Receipt Date: 20121109
  Transmission Date: 20130627
  Serious: Yes (Other)
  Sender: FDA-Public Use
  Company Number: JP-ASTELLAS-2011JP006973

PATIENT
  Age: 33 Year
  Sex: Female
  Weight: 42 kg

DRUGS (24)
  1. TACROLIMUS CAPSULES [Suspect]
     Indication: LUPUS NEPHRITIS
     Dosage: 3 mg, Unknown/D
     Route: 048
     Dates: start: 20080313
  2. PREDONINE [Suspect]
     Indication: LUPUS NEPHRITIS
     Dosage: 30 mg, Unknown/D
     Route: 048
     Dates: end: 20081217
  3. PREDONINE [Suspect]
     Dosage: 27.5 mg, Unknown/D
     Route: 048
     Dates: start: 20081218, end: 20090204
  4. PREDONINE [Suspect]
     Dosage: 25 mg, Unknown/D
     Route: 048
     Dates: start: 20090205, end: 20090513
  5. PREDONINE [Suspect]
     Dosage: 22.5 mg, Unknown/D
     Route: 048
     Dates: start: 20090514, end: 20091021
  6. PREDONINE [Suspect]
     Dosage: 20 mg, Unknown/D
     Route: 048
     Dates: start: 20091022, end: 20100120
  7. PREDONINE [Suspect]
     Dosage: 17.5 mg, Unknown/D
     Route: 048
     Dates: start: 20100121, end: 20100217
  8. PREDONINE [Suspect]
     Dosage: 15 mg, Unknown/D
     Route: 048
     Dates: start: 20100218, end: 20100715
  9. PREDONINE [Suspect]
     Dosage: 12.5 mg, Unknown/D
     Route: 048
     Dates: start: 20100716, end: 20101118
  10. PREDONINE [Suspect]
     Dosage: 11.25 mg, Unknown/D
     Route: 048
     Dates: start: 20101119, end: 20110113
  11. PREDONINE [Suspect]
     Dosage: 10 mg, Unknown/D
     Route: 048
     Dates: start: 20110114, end: 20110609
  12. PREDONINE [Suspect]
     Dosage: 9 mg, Unknown/D
     Route: 048
     Dates: start: 20110610, end: 20120216
  13. PREDONINE [Suspect]
     Dosage: 8.5 mg, Unknown/D
     Route: 048
     Dates: start: 20120217
  14. RHEUMATREX [Suspect]
     Indication: LUPUS NEPHRITIS
     Dosage: 8 mg, Weekly
     Route: 048
  15. NEUER [Concomitant]
     Dosage: 400 mg, Unknown/D
     Route: 048
  16. LOXONIN [Concomitant]
     Dosage: 120 mg, Unknown/D
     Route: 048
     Dates: end: 20101118
  17. LOXONIN [Concomitant]
     Dosage: 180 mg, prn
     Route: 048
     Dates: start: 20110915
  18. FOSAMAC [Concomitant]
     Dosage: 35 mg, Weekly
     Route: 048
  19. FOLIAMIN [Concomitant]
     Dosage: UNK
     Route: 048
     Dates: end: 20080918
  20. MOHRUS [Concomitant]
     Dosage: UNK
     Route: 062
     Dates: end: 20081218
  21. ONEALFA [Concomitant]
     Dosage: 0.5 ug, Unknown/D
     Route: 048
     Dates: start: 20100218
  22. ARASENA A [Concomitant]
     Indication: ORAL HERPES
     Dosage: UNK
     Route: 061
     Dates: start: 20101101, end: 20110112
  23. FLOMOX [Concomitant]
     Indication: PYREXIA
     Dosage: 300 mg, Unknown/D
     Route: 048
     Dates: start: 20110128, end: 20110203
  24. COCARL [Concomitant]
     Indication: PYREXIA
     Dosage: 400 mg, prn
     Route: 048
     Dates: start: 20110128, end: 20110202

REACTIONS (4)
  - Spinal compression fracture [Recovered/Resolved]
  - Oral herpes [Recovering/Resolving]
  - Pyrexia [Recovered/Resolved]
  - Platelet count decreased [Recovering/Resolving]
